FAERS Safety Report 7165961-9 (Version None)
Quarter: 2010Q4

REPORT INFORMATION
  Report Type: 
  Country: None (occurrence: None)
  Receive Date: 20101216
  Receipt Date: 20101202
  Transmission Date: 20110411
  Serious: No
  Sender: FDA-Public Use
  Company Number: US-BIOGENIDEC-2010BI042721

PATIENT
  Age: 57 Year
  Sex: Female

DRUGS (3)
  1. TYSABRI [Suspect]
     Indication: MULTIPLE SCLEROSIS
     Route: 042
     Dates: start: 20071227
  2. BACLOFEN [Concomitant]
  3. AMPYRA [Concomitant]
     Indication: GAIT DISTURBANCE
     Dates: start: 20100301

REACTIONS (1)
  - DERMATITIS ALLERGIC [None]
